FAERS Safety Report 6071385-8 (Version None)
Quarter: 2009Q1

REPORT INFORMATION
  Report Type: 
  Country: None (occurrence: None)
  Receive Date: 20090209
  Receipt Date: 20090130
  Transmission Date: 20090719
  Serious: Yes (Other)
  Sender: FDA-Public Use
  Company Number: US-BAXTER-2009BH001892

PATIENT

DRUGS (1)
  1. SUPRANE [Suspect]
     Indication: ANAESTHESIA
     Route: 055
     Dates: start: 20090129, end: 20090129

REACTIONS (2)
  - HYPOTENSION [None]
  - PRODUCT QUALITY ISSUE [None]
